FAERS Safety Report 6585955-1 (Version None)
Quarter: 2010Q1

REPORT INFORMATION
  Report Type: 
  Country: None (occurrence: None)
  Receive Date: 20100217
  Receipt Date: 20100204
  Transmission Date: 20100710
  Serious: Yes (Hospitalization, Other)
  Sender: FDA-Public Use
  Company Number: US-ELI_LILLY_AND_COMPANY-US201002001853

PATIENT
  Age: 66 Year
  Sex: Female

DRUGS (13)
  1. DULOXETINE HYDROCHLORIDE [Suspect]
     Indication: DEPRESSION
     Dosage: 60 MG, DAILY (1/D)
     Route: 048
  2. MEMANTINE HCL [Concomitant]
     Indication: DEMENTIA
     Dosage: 10 MG, 2/D
     Route: 048
  3. DONEPEZIL HYDROCHLORIDE [Concomitant]
     Indication: DEMENTIA
     Dosage: 10 MG, DAILY (1/D)
     Route: 048
  4. CLONIDINE [Concomitant]
     Indication: HYPERTENSION
     Dosage: 0.1 MG, 3/D
     Route: 048
  5. CLONIDINE [Concomitant]
     Dosage: 0.2 MG, 3/D
     Route: 048
  6. CLONIDINE [Concomitant]
     Dosage: 0.1 MG, 3/D
     Route: 048
  7. METOPROLOL TARTRATE [Concomitant]
     Indication: HYPERTENSION
     Dosage: 50 MG, 2/D
     Route: 048
  8. AMLODIPINE [Concomitant]
     Indication: HYPERTENSION
     Dosage: 10 MG, DAILY (1/D)
     Route: 048
  9. ATORVASTATIN [Concomitant]
     Dosage: 80 MG, UNK
  10. ASPIRIN [Concomitant]
     Dosage: 325 MG, UNK
  11. CLOPIDOGREL [Concomitant]
     Dosage: 75 MG, DAILY (1/D)
     Route: 048
  12. FENTANYL-100 [Concomitant]
     Indication: ANAESTHESIA
     Dosage: 100 UG, UNK
     Route: 042
  13. MIDAZOLAM HCL [Concomitant]
     Indication: ANAESTHESIA
     Dosage: 6 MG, UNK
     Route: 042

REACTIONS (4)
  - ACUTE MYOCARDIAL INFARCTION [None]
  - BLOOD PRESSURE INADEQUATELY CONTROLLED [None]
  - DRUG INTERACTION [None]
  - PYREXIA [None]
